FAERS Safety Report 8065705-2 (Version None)
Quarter: 2012Q1

REPORT INFORMATION
  Report Type: 
  Country: None (occurrence: None)
  Receive Date: 20120117
  Receipt Date: 20120111
  Transmission Date: 20120608
  Serious: Yes (Other)
  Sender: FDA-Public Use
  Company Number: 2012MA000597

PATIENT
  Age: 26 Year

DRUGS (1)
  1. MINOXIDIL [Suspect]
     Dosage: 3 GM;PO
     Route: 048

REACTIONS (5)
  - ANGINA PECTORIS [None]
  - TACHYCARDIA [None]
  - HYPOTENSION [None]
  - INCORRECT DOSE ADMINISTERED [None]
  - ELECTROCARDIOGRAM ST SEGMENT DEPRESSION [None]
